FAERS Safety Report 6419013-3 (Version None)
Quarter: 2009Q4

REPORT INFORMATION
  Report Type: 
  Country: None (occurrence: None)
  Receive Date: 20091029
  Receipt Date: 20091020
  Transmission Date: 20100525
  Serious: Yes (Hospitalization)
  Sender: FDA-Public Use
  Company Number: BR-ASTRAZENECA-2009SE21876

PATIENT
  Sex: Female

DRUGS (2)
  1. ZOLADEX [Suspect]
     Indication: ENDOMETRIOSIS
     Route: 058
  2. ZOLADEX [Suspect]
     Route: 058
     Dates: start: 20080101, end: 20080101

REACTIONS (2)
  - HEPATITIS [None]
  - PAIN [None]
